FAERS Safety Report 22154778 (Version 1)
Quarter: 2023Q1

REPORT INFORMATION
  Report Type: Spontaneous
  Country: GB (occurrence: GB)
  Receive Date: 20230330
  Receipt Date: 20230330
  Transmission Date: 20230418
  Serious: Yes (Hospitalization)
  Sender: FDA-Public Use
  Company Number: GB-MHRA-MED-202303221440589280-TNPJK

PATIENT
  Sex: Male

DRUGS (1)
  1. ACETAMINOPHEN [Suspect]
     Active Substance: ACETAMINOPHEN
     Indication: Product used for unknown indication
     Dosage: RECEIVING ORAL PARACETAMOL AND SAME REACTION WITH SUBSEQUENT EVENING DOSE
     Route: 048

REACTIONS (1)
  - Hypotension [Recovered/Resolved]
